FAERS Safety Report 8806191 (Version 2)
Quarter: 2013Q1

REPORT INFORMATION
  Report Type: Spontaneous
  Country: GB (occurrence: GB)
  Receive Date: 20120925
  Receipt Date: 20130109
  Transmission Date: 20140127
  Serious: Yes (Disabling)
  Sender: FDA-Public Use
  Company Number: PHFR2012GB005044

PATIENT
  Age: 85 Year
  Sex: Female
  Weight: 95 kg

DRUGS (17)
  1. ZOLEDRONIC ACID [Suspect]
     Indication: SJOGREN^S SYNDROME
     Dosage: UNK UKN, UNK
     Route: 042
     Dates: start: 20120904, end: 20120904
  2. ADCAL-D3 [Concomitant]
     Dosage: UNK UKN, UNK
  3. BENDROFLUMETHIAZIDE [Concomitant]
     Dosage: UNK UKN, UNK
  4. BUPRENORPHINE [Concomitant]
     Dosage: UNK UKN, UNK
  5. CARBOMER [Concomitant]
     Dosage: UNK UKN, UNK
  6. DOCUSATE [Concomitant]
     Dosage: UNK UKN, UNK
  7. DORZOLAMIDE [Concomitant]
     Dosage: UNK UKN, UNK
  8. DOUBLEBASE [Concomitant]
     Dosage: UNK UKN, UNK
  9. FYBOGEL [Concomitant]
     Dosage: UNK UKN, UNK
  10. GLYCEROL [Concomitant]
     Dosage: UNK UKN, UNK
  11. HYDROCORTISONE [Concomitant]
     Dosage: UNK UKN, UNK
  12. LEVOTHYROXINE [Concomitant]
     Dosage: UNK UKN, UNK
  13. METHYLPREDNISOLONE [Concomitant]
     Dosage: UNK UKN, UNK
  14. MICONAZOLE [Concomitant]
     Dosage: 1 DF, BID
  15. OMEPRAZOLE [Concomitant]
     Dosage: UNK UKN, UNK
  16. PENCICLOVIR [Concomitant]
     Dosage: 1 DF, AFTER EVERY 2 HOURS
  17. TAFLUPROST [Concomitant]
     Dosage: 1 DF, UNK

REACTIONS (4)
  - Circulatory collapse [Unknown]
  - Cerebral calcification [Unknown]
  - Cerebral haemorrhage [Unknown]
  - Speech disorder [Unknown]
